FAERS Safety Report 5798405-X (Version None)
Quarter: 2008Q3

REPORT INFORMATION
  Report Type: 
  Country: None (occurrence: None)
  Receive Date: 20080701
  Receipt Date: 20080701
  Transmission Date: 20090109
  Serious: No
  Sender: FDA-Public Use
  Company Number: None

PATIENT

DRUGS (5)
  1. LASIX [Suspect]
     Dosage: TABLET
  2. PLAVIX [Suspect]
     Dosage: TABLET
  3. PRINIVIL [Suspect]
     Dosage: TABLET
  4. COREG [Suspect]
     Dosage: TABLET
  5. PLETAL [Suspect]
     Dosage: TABLET

REACTIONS (1)
  - MEDICATION ERROR [None]
